FAERS Safety Report 9500761 (Version 1)
Quarter: 2013Q3

REPORT INFORMATION
  Report Type: Spontaneous
  Country: US (occurrence: US)
  Receive Date: 20130905
  Receipt Date: 20130905
  Transmission Date: 20140515
  Serious: Yes (Hospitalization, Other)
  Sender: FDA-Public Use
  Company Number: US-ELI_LILLY_AND_COMPANY-US201308009647

PATIENT
  Age: 85 Year
  Sex: Male

DRUGS (2)
  1. CIALIS [Suspect]
     Indication: ERECTILE DYSFUNCTION
     Dosage: 5 MG, QD
  2. CIALIS [Suspect]
     Dosage: 20 MG, PRN
     Dates: end: 201308

REACTIONS (2)
  - Benign prostatic hyperplasia [Unknown]
  - Drug ineffective [Unknown]
